FAERS Safety Report 9745036 (Version 1)
Quarter: 2013Q4

REPORT INFORMATION
  Report Type: Spontaneous
  Country: ES (occurrence: ES)
  Receive Date: 20131211
  Receipt Date: 20131211
  Transmission Date: 20140711
  Serious: No
  Sender: FDA-Public Use
  Company Number: ES-JNJFOC-20131202262

PATIENT
  Sex: Female

DRUGS (2)
  1. DUROGESIC [Suspect]
     Indication: PRODUCT USED FOR UNKNOWN INDICATION
     Route: 062
  2. DUROGESIC [Suspect]
     Indication: PRODUCT USED FOR UNKNOWN INDICATION
     Dosage: 25 UG/HR PLUS HALF OF ANOTHER PATCH (CUT)
     Route: 062

REACTIONS (1)
  - Drug prescribing error [Unknown]
